FAERS Safety Report 8983437 (Version 1)
Quarter: 2012Q4

REPORT INFORMATION
  Report Type: 
  Country: DE (occurrence: FR)
  Receive Date: 20121224
  Receipt Date: 20121224
  Transmission Date: 20130627
  Serious: Yes (Other)
  Sender: FDA-Public Use
  Company Number: FR-BRISTOL-MYERS SQUIBB COMPANY-17223280

PATIENT

DRUGS (1)
  1. ERBITUX SOLN FOR INF [Suspect]
     Route: 042

REACTIONS (1)
  - Shock [Unknown]
